FAERS Safety Report 13695822 (Version 1)
Quarter: 2017Q2

REPORT INFORMATION
  Report Type: Report from Study
  Country: US (occurrence: US)
  Receive Date: 20170627
  Receipt Date: 20170627
  Transmission Date: 20170830
  Serious: Yes (Hospitalization)
  Sender: FDA-Public Use
  Company Number: US-VIFOR (INTERNATIONAL) INC.-VIT-2017-06885

PATIENT
  Age: 70 Year
  Sex: Male

DRUGS (11)
  1. CARVEDILOL. [Concomitant]
     Active Substance: CARVEDILOL
  2. LOSARTAN POTASSIUM. [Concomitant]
     Active Substance: LOSARTAN POTASSIUM
  3. COLECALCIFEROL [Concomitant]
     Active Substance: CHOLECALCIFEROL
  4. ALLOPURINOL. [Concomitant]
     Active Substance: ALLOPURINOL
  5. LEVOTHYROXINE SODIUM. [Concomitant]
     Active Substance: LEVOTHYROXINE SODIUM
  6. ATORVASTATIN [Concomitant]
     Active Substance: ATORVASTATIN
  7. IRON [Concomitant]
     Active Substance: IRON
  8. CLONIDINE. [Concomitant]
     Active Substance: CLONIDINE
  9. VELTASSA [Suspect]
     Active Substance: PATIROMER
     Indication: HYPERKALAEMIA
     Route: 048
     Dates: start: 20170317
  10. ACETYLSALICYLIC ACID [Concomitant]
     Active Substance: ASPIRIN
  11. FUROSEMIDE. [Concomitant]
     Active Substance: FUROSEMIDE

REACTIONS (1)
  - Nerve compression [Not Recovered/Not Resolved]

NARRATIVE: CASE EVENT DATE: 20170531
